FAERS Safety Report 4303231-4 (Version None)
Quarter: 2004Q1

REPORT INFORMATION
  Report Type: 
  Country: None (occurrence: None)
  Receive Date: 20040223
  Receipt Date: 20040211
  Transmission Date: 20041129
  Serious: Yes (Other)
  Sender: FDA-Public Use
  Company Number: HQWYE939112FEB04

PATIENT
  Age: 48 Year
  Sex: Female

DRUGS (1)
  1. RAPAMUNE [Suspect]
     Dosage: ORAL
     Route: 048
     Dates: start: 20030501, end: 20030901

REACTIONS (2)
  - HYPERLIPIDAEMIA [None]
  - PROTEIN URINE PRESENT [None]
